FAERS Safety Report 5589543-5 (Version None)
Quarter: 2008Q1

REPORT INFORMATION
  Report Type: 
  Country: None (occurrence: None)
  Receive Date: 20080114
  Receipt Date: 20080102
  Transmission Date: 20080703
  Serious: Yes (Hospitalization)
  Sender: FDA-Public Use
  Company Number: US-AMGEN-QUU258771

PATIENT
  Sex: Male

DRUGS (2)
  1. ENBREL [Suspect]
     Indication: PSORIATIC ARTHROPATHY
     Route: 058
     Dates: start: 20030101, end: 20070101
  2. ENBREL [Suspect]
     Indication: PSORIASIS

REACTIONS (3)
  - CHEST PAIN [None]
  - CORONARY ARTERY BYPASS [None]
  - DRUG INEFFECTIVE [None]
